APPROVED DRUG PRODUCT: RUKOBIA
Active Ingredient: FOSTEMSAVIR TROMETHAMINE
Strength: EQ 600MG BASE
Dosage Form/Route: TABLET, EXTENDED RELEASE;ORAL
Application: N212950 | Product #001
Applicant: VIIV HEALTHCARE CO
Approved: Jul 2, 2020 | RLD: Yes | RS: Yes | Type: RX

PATENTS:
Patent 7745625 | Expires: Nov 19, 2027
Patent 8168615 | Expires: Jul 13, 2029